FAERS Safety Report 16594838 (Version 2)
Quarter: 2019Q4

REPORT INFORMATION
  Report Type: Spontaneous
  Country: HU (occurrence: HU)
  Receive Date: 20190718
  Receipt Date: 20191024
  Transmission Date: 20200122
  Serious: Yes (Life-Threatening, Hospitalization)
  Sender: FDA-Public Use
  Company Number: HU-PFIZER INC-2019282471

PATIENT
  Age: 45 Year
  Sex: Male

DRUGS (5)
  1. DALACIN [CLINDAMYCIN PHOSPHATE] [Suspect]
     Active Substance: CLINDAMYCIN PHOSPHATE
     Indication: STREPTOCOCCAL INFECTION
     Dosage: 600 MG, 3X/DAY
     Route: 042
     Dates: start: 201905, end: 20190527
  2. TAZOCIN [Suspect]
     Active Substance: PIPERACILLIN SODIUM\TAZOBACTAM SODIUM
     Indication: SOFT TISSUE INFECTION
     Dosage: 4.5 G, 3X/DAY
     Route: 042
     Dates: start: 201905, end: 20190527
  3. TIENAM [Suspect]
     Active Substance: CILASTATIN SODIUM\IMIPENEM
     Indication: SEPTIC SHOCK
     Dosage: UNK
     Route: 042
     Dates: start: 20190519, end: 20190521
  4. BENZYLPENICILLIN [Suspect]
     Active Substance: PENICILLIN G
     Indication: SOFT TISSUE INFECTION
     Dosage: 4 MILLION IU (6 TIMES PER DAY)
     Route: 042
     Dates: start: 201905, end: 20190530
  5. BENZYLPENICILLIN [Suspect]
     Active Substance: PENICILLIN G
     Indication: STREPTOCOCCAL INFECTION

REACTIONS (2)
  - Condition aggravated [Recovered/Resolved]
  - Soft tissue infection [Recovered/Resolved]

NARRATIVE: CASE EVENT DATE: 20190519
